FAERS Safety Report 17193946 (Version 1)
Quarter: 2019Q4

REPORT INFORMATION
  Report Type: Spontaneous
  Country: JP (occurrence: JP)
  Receive Date: 20191223
  Receipt Date: 20191223
  Transmission Date: 20200122
  Serious: Yes (Other)
  Sender: FDA-Public Use
  Company Number: JP-TAKEDA-2019TJP029564

PATIENT
  Sex: Female

DRUGS (2)
  1. JARDIANCE [Concomitant]
     Active Substance: EMPAGLIFLOZIN
     Dosage: UNK
     Route: 065
  2. NESINA [Suspect]
     Active Substance: ALOGLIPTIN BENZOATE
     Indication: PRODUCT USED FOR UNKNOWN INDICATION
     Dosage: UNK
     Route: 065

REACTIONS (3)
  - Dizziness postural [Unknown]
  - Dizziness [Unknown]
  - Loss of consciousness [Unknown]
